FAERS Safety Report 11872181 (Version 3)
Quarter: 2016Q1

REPORT INFORMATION
  Report Type: Spontaneous
  Country: BR (occurrence: BR)
  Receive Date: 20151228
  Receipt Date: 20160303
  Transmission Date: 20160526
  Serious: Yes (Other)
  Sender: FDA-Public Use
  Company Number: BR-BAYER-2015-493424

PATIENT
  Sex: Female

DRUGS (1)
  1. YASMIN [Suspect]
     Active Substance: DROSPIRENONE\ETHINYL ESTRADIOL
     Indication: CONTRACEPTION
     Dosage: UNK
     Route: 048

REACTIONS (6)
  - Maternal exposure before pregnancy [None]
  - Premature labour [None]
  - Umbilical cord vascular disorder [None]
  - Maternal condition affecting foetus [None]
  - Hypercoagulation [None]
  - Protein S deficiency [None]
